FAERS Safety Report 6028436-6 (Version None)
Quarter: 2009Q1

REPORT INFORMATION
  Report Type: 
  Country: None (occurrence: None)
  Receive Date: 20090106
  Receipt Date: 20081229
  Transmission Date: 20090719
  Serious: Yes (Hospitalization)
  Sender: FDA-Public Use
  Company Number: PHHO2008US15376

PATIENT
  Weight: 133.33 kg

DRUGS (7)
  1. ALDESLEUKIN C-ALDE+INJ [Suspect]
     Indication: METASTATIC RENAL CELL CARCINOMA
     Dosage: 56.7MMU
     Dates: start: 20081203
  2. PROCRIT [Concomitant]
  3. ALPRAZOLAM [Concomitant]
  4. NYQUIL [Concomitant]
  5. AMBIEN [Concomitant]
  6. FERROUS GLUCONATE [Concomitant]
  7. FLOMAX [Concomitant]

REACTIONS (4)
  - CATHETER SITE INFECTION [None]
  - CHEST PAIN [None]
  - PNEUMONIA [None]
  - PULMONARY THROMBOSIS [None]
